FAERS Safety Report 8049926 (Version 4)
Quarter: 2018Q1

REPORT INFORMATION
  Report Type: Report from Study
  Country: US (occurrence: US)
  Receive Date: 20110722
  Receipt Date: 20180102
  Transmission Date: 20180509
  Serious: Yes (Death, Hospitalization, Other)
  Sender: FDA-Public Use
  Company Number: US-BRISTOL-MYERS SQUIBB COMPANY-15915382

PATIENT
  Age: 68 Year
  Sex: Female
  Weight: 64.5 kg

DRUGS (3)
  1. CETUXIMAB. [Suspect]
     Active Substance: CETUXIMAB
     Indication: OESOPHAGEAL CARCINOMA
     Dosage: LAST DOSE ON 21JUN11,DAY 36 OMITTED
     Route: 065
     Dates: start: 20110524
  2. CISPLATIN. [Suspect]
     Active Substance: CISPLATIN
     Indication: OESOPHAGEAL CARCINOMA
     Dosage: LAST DOSE ON 21JUN11,DAY 36 OMITTED
     Route: 065
     Dates: start: 20110524
  3. PACLITAXEL. [Suspect]
     Active Substance: PACLITAXEL
     Indication: OESOPHAGEAL CARCINOMA
     Dosage: LAST DOSE ON 21JUN11
     Route: 065
     Dates: start: 20110524

REACTIONS (3)
  - Acute kidney injury [Fatal]
  - Hyperkalaemia [Not Recovered/Not Resolved]
  - General physical health deterioration [Fatal]

NARRATIVE: CASE EVENT DATE: 20110715
